FAERS Safety Report 4558194-3 (Version None)
Quarter: 2005Q1

REPORT INFORMATION
  Report Type: 
  Country: None (occurrence: None)
  Receive Date: 20050107
  Receipt Date: 20040819
  Transmission Date: 20050727
  Serious: Yes (Hospitalization)
  Sender: FDA-Public Use
  Company Number: 04P-163-0271223-00

PATIENT
  Age: 43 Year
  Sex: Female

DRUGS (2)
  1. OMNICEF [Suspect]
     Dosage: PER ORAL
     Route: 048
     Dates: start: 20041014, end: 20031020
  2. ETANERCEPT [Concomitant]

REACTIONS (2)
  - CHEST PAIN [None]
  - HAEMOLYTIC ANAEMIA [None]
